FAERS Safety Report 23478538 (Version 1)
Quarter: 2024Q1

REPORT INFORMATION
  Report Type: Spontaneous
  Country: JP (occurrence: JP)
  Receive Date: 20240205
  Receipt Date: 20240205
  Transmission Date: 20240410
  Serious: Yes (Hospitalization, Other)
  Sender: FDA-Public Use
  Company Number: None

PATIENT
  Sex: Male

DRUGS (1)
  1. IVABRADINE HYDROCHLORIDE [Suspect]
     Active Substance: IVABRADINE HYDROCHLORIDE
     Indication: Cardiac failure chronic
     Dosage: 5 MG
     Route: 048

REACTIONS (5)
  - Acute kidney injury [Unknown]
  - Electrocardiogram QT prolonged [Unknown]
  - Anaemia [Unknown]
  - Dehydration [Unknown]
  - Blood pressure increased [Unknown]
